FAERS Safety Report 5340468-X (Version None)
Quarter: 2007Q2

REPORT INFORMATION
  Report Type: 
  Country: None (occurrence: None)
  Receive Date: 20070405
  Receipt Date: 20061206
  Transmission Date: 20071010
  Serious: Yes (Death)
  Sender: FDA-Public Use
  Company Number: US200612000235

PATIENT
  Age: 39 Year
  Sex: Male

DRUGS (4)
  1. CYMBALTA [Suspect]
     Indication: DEPRESSION
     Dosage: SEE IMAGE
     Route: 048
     Dates: start: 20061018, end: 20061025
  2. CYMBALTA [Suspect]
     Indication: DEPRESSION
     Dosage: SEE IMAGE
     Route: 048
     Dates: start: 20061025
  3. WELLBUTRIN [Concomitant]
  4. XANAX /USA/ (ALPRAZOLAM) [Concomitant]

REACTIONS (1)
  - COMPLETED SUICIDE [None]
